FAERS Safety Report 17403382 (Version 2)
Quarter: 2020Q1

REPORT INFORMATION
  Report Type: Spontaneous
  Country: US (occurrence: US)
  Receive Date: 20200211
  Receipt Date: 20200213
  Transmission Date: 20200409
  Serious: Yes (Other)
  Sender: FDA-Public Use
  Company Number: US-PFIZER INC-2020056964

PATIENT
  Age: 90 Year
  Sex: Male

DRUGS (2)
  1. LYRICA [Suspect]
     Active Substance: PREGABALIN
     Dosage: 75 MG, 2X/DAY(75MG IN THE MORNING AND 75 MG AT NIGHT)
  2. LYRICA [Suspect]
     Active Substance: PREGABALIN
     Dosage: 75 MG, DAILY (25MG IN THE MORNING AND 50MG AT NIGHT)

REACTIONS (3)
  - Walking aid user [Unknown]
  - Neuropathy peripheral [Unknown]
  - Condition aggravated [Unknown]
